FAERS Safety Report 17350013 (Version 2)
Quarter: 2020Q4

REPORT INFORMATION
  Report Type: Spontaneous
  Country: US (occurrence: US)
  Receive Date: 20200130
  Receipt Date: 20201029
  Transmission Date: 20210113
  Serious: Yes (Hospitalization, Other)
  Sender: FDA-Public Use
  Company Number: US-TEVA-2020-US-1176769

PATIENT
  Age: 61 Year
  Sex: Female

DRUGS (23)
  1. LORAZEPAM (ATIVAN) 2 MG [Concomitant]
     Dosage: TAKE 1 TAB BY MOUTH NIGHTLY
     Route: 048
  2. PANTOPRAZOLE (PROTONIX) 40MG [Concomitant]
     Dosage: TABLET DELAYED RESPONSE; TAKE 1 TAB BY MOUTH DAILY.
  3. ALPHA-LIPOIC ACID 600 MG [Concomitant]
     Indication: MUSCLE SPASMS
     Dosage: TAKE 1 CAP BY CAPSULE MOUTH 2 TIMES DAILY.
     Route: 048
  4. ABILIFY [Concomitant]
     Active Substance: ARIPIPRAZOLE
  5. HYDROXYCHLOR (PLAQUENIL) 200 MG TABLET [Concomitant]
     Dosage: TAKE 200 MG BY MOUTH DAILY.
     Route: 048
  6. SULFASALAZINE DELAYED-RELEASE [Concomitant]
     Active Substance: SULFASALAZINE
  7. ARIPIPRAZOLE. [Concomitant]
     Active Substance: ARIPIPRAZOLE
     Dosage: 1 DOSAGE FORMS DAILY; TAKE 1 TAB BY MOUTH DAILY.
     Route: 048
  8. FLUTICASONE. [Concomitant]
     Active Substance: FLUTICASONE
  9. TRAMADOL (UL TRAM) 50 MG [Concomitant]
     Indication: PAIN
     Dosage: TAKE 2 TABS BY MOUTH EVERY 6 HOURS AS NEEDED FOR MODERATE OR MORE SEVERE PAIN
     Route: 048
  10. MYRBETRIQ [Concomitant]
     Active Substance: MIRABEGRON
  11. PREDNISONE (DELTASONE) 5MG [Concomitant]
     Dosage: TAKE 5 MG BY MOUTH DAILY.
     Route: 048
  12. CALCIUM 600 MG PO TABS [Concomitant]
     Dosage: TAKE 1,200 MG BY MOUTH DAILY.
     Route: 048
  13. DICYCLOMINE (BENTYL) 20 MG [Concomitant]
     Dosage: TK 1 T PO BID
  14. ESCITALOPRAM (LEXAPRO) 20MG [Concomitant]
     Dosage: TAKE 1 TAB BY MOUTH DAILY.
  15. LAMOTRIGINE (LAMICTAL) 200MG [Concomitant]
     Dosage: TAKE 1 TAB BY MOUTH DAILY.
     Route: 048
  16. MELOXICAM (MOBIC) 15 MG [Concomitant]
     Dosage: TAKE 1 TAB BY MOUTH DAILY.
     Route: 048
  17. TRAZODONE (DESYREL) 150MG [Concomitant]
     Dosage: TAKE 1 TAB BY MOUTH NIGHTLY.
     Route: 048
  18. RITUXIMAB (RITUXAN IV) [Concomitant]
     Indication: RHEUMATOID ARTHRITIS
     Dosage: BY INTRAVENOUS ROUTE EVERY 3 MONTHS
     Route: 067
  19. CRANBERRY 500 MG CAPSULE [Concomitant]
     Dosage: TAKE 1 CAP BY MOUTH DAILY.
     Route: 048
  20. VITAMIN B-12 CYANOCOBALAMIN) 2500 MCG SL TABLET [Concomitant]
     Dosage: TAKE 1 TAB BY MOUTH DAILY.
     Route: 048
  21. BACLOFEN (LIORESAL) 10 MG TABLET [Concomitant]
     Indication: MUSCLE SPASMS
     Dosage: TAKE 1 TAB BY MOUTH 3 TIMES DAILY AS NEEDED FOR MUSCLE SPASMS
     Route: 048
     Dates: start: 20200825
  22. COPAXONE [Suspect]
     Active Substance: GLATIRAMER ACETATE
     Indication: MULTIPLE SCLEROSIS
     Dosage: COPAXONE 40MG MON, WED + FRIDAY
     Route: 058
     Dates: start: 20150521
  23. CHOLECALCIFEROL (VITAMIN D PO) [Concomitant]
     Dosage: TAKE 5,000 UNITS BY MOUTH DAILY.
     Route: 048

REACTIONS (3)
  - Intestinal obstruction [Not Recovered/Not Resolved]
  - Multiple sclerosis relapse [Recovered/Resolved]
  - Skin reaction [Unknown]

NARRATIVE: CASE EVENT DATE: 2019
